FAERS Safety Report 6610804-2 (Version None)
Quarter: 2010Q1

REPORT INFORMATION
  Report Type: 
  Country: None (occurrence: None)
  Receive Date: 20100302
  Receipt Date: 20100218
  Transmission Date: 20100710
  Serious: Yes (Hospitalization)
  Sender: FDA-Public Use
  Company Number: DE-PFIZER INC-2010021098

PATIENT
  Age: 52 Year
  Sex: Male

DRUGS (6)
  1. ZELDOX [Suspect]
     Indication: SCHIZOAFFECTIVE DISORDER DEPRESSIVE TYPE
     Dosage: 80 MG PER DAY
     Route: 048
     Dates: start: 20090713, end: 20090722
  2. ZELDOX [Suspect]
     Dosage: 120 MG, 1X/DAY
     Route: 048
     Dates: start: 20090723, end: 20090828
  3. PANTOZOL [Concomitant]
     Dosage: UNK
  4. ACETYLSALICYLIC ACID [Concomitant]
     Dosage: UNK
     Route: 048
  5. ZYPREXA [Concomitant]
     Dosage: UNK
     Route: 048
     Dates: start: 20090622, end: 20090623
  6. ZYPREXA [Concomitant]
     Dosage: 10-7.5 MG/DAY
     Route: 048
     Dates: start: 20090623

REACTIONS (3)
  - AKATHISIA [None]
  - ERECTILE DYSFUNCTION [None]
  - RESTLESSNESS [None]
